FAERS Safety Report 6601327-5 (Version None)
Quarter: 2010Q1

REPORT INFORMATION
  Report Type: 
  Country: None (occurrence: None)
  Receive Date: 20100224
  Receipt Date: 20100224
  Transmission Date: 20100710
  Serious: Yes (Hospitalization)
  Sender: FDA-Public Use
  Company Number: None

PATIENT
  Age: 68 Year
  Sex: Male
  Weight: 63.2 kg

DRUGS (2)
  1. SUNITINIB MALATE [Suspect]
     Indication: GASTROINTESTINAL STROMAL TUMOUR
     Dosage: SUNITINIB 25 MG SUNITINIB DAILY PO
     Route: 048
     Dates: start: 20080109, end: 20100121
  2. IMATINIB MESYLATE [Suspect]
     Dosage: IMATINIB 200 MG IMATINIB DAILY PO
     Route: 048
     Dates: start: 20080109, end: 20100122

REACTIONS (2)
  - CHOLANGITIS [None]
  - SEPSIS [None]
